FAERS Safety Report 6115633-4 (Version None)
Quarter: 2009Q1

REPORT INFORMATION
  Report Type: 
  Country: None (occurrence: None)
  Receive Date: 20090313
  Receipt Date: 20090303
  Transmission Date: 20090719
  Serious: Yes (Life-Threatening, Hospitalization, Disabling, Other)
  Sender: FDA-Public Use
  Company Number: BE-JNJFOC-20080405227

PATIENT
  Sex: Male
  Weight: 103 kg

DRUGS (10)
  1. INFLIXIMAB [Suspect]
     Route: 042
  2. INFLIXIMAB [Suspect]
     Route: 042
  3. INFLIXIMAB [Suspect]
     Route: 042
  4. INFLIXIMAB [Suspect]
     Route: 042
  5. INFLIXIMAB [Suspect]
     Route: 042
  6. INFLIXIMAB [Suspect]
     Route: 042
  7. INFLIXIMAB [Suspect]
     Route: 042
  8. INFLIXIMAB [Suspect]
     Indication: CROHN'S DISEASE
     Route: 042
  9. IMURAN [Concomitant]
     Indication: CROHN'S DISEASE
  10. COLITOFALK [Concomitant]

REACTIONS (4)
  - BIOPSY LIVER [None]
  - CYTOMEGALOVIRUS HEPATITIS [None]
  - LEUKOPENIA [None]
  - THROMBOCYTOPENIA [None]
